FAERS Safety Report 24835991 (Version 4)
Quarter: 2025Q3

REPORT INFORMATION
  Report Type: Spontaneous
  Country: US (occurrence: US)
  Receive Date: 20250113
  Receipt Date: 20250810
  Transmission Date: 20251020
  Serious: No
  Sender: ALEXION PHARMACEUTICALS
  Company Number: US-AstraZeneca-CH-00783011AP

PATIENT
  Age: 68 Year
  Sex: Female

DRUGS (1)
  1. BREZTRI [Suspect]
     Active Substance: BUDESONIDE\FORMOTEROL\GLYCOPYRROLATE
     Dosage: 20 MILLIGRAM, BID
     Dates: start: 2024

REACTIONS (7)
  - Device use issue [Unknown]
  - Wrong technique in device usage process [Unknown]
  - Frustration tolerance decreased [Unknown]
  - Product use issue [Unknown]
  - Device issue [Unknown]
  - No adverse event [Unknown]
  - Device dispensing error [Unknown]

NARRATIVE: CASE EVENT DATE: 20250106
